FAERS Safety Report 6976830-9 (Version None)
Quarter: 2010Q3

REPORT INFORMATION
  Report Type: 
  Country: None (occurrence: None)
  Receive Date: 20100910
  Receipt Date: 20100902
  Transmission Date: 20110219
  Serious: Yes (Hospitalization)
  Sender: FDA-Public Use
  Company Number: A0879409A

PATIENT
  Sex: Male
  Weight: 59 kg

DRUGS (2)
  1. TOPOTECAN [Suspect]
     Dosage: 1.75MG PER DAY
     Route: 048
     Dates: start: 20100615, end: 20100625
  2. RADIOTHERAPY [Suspect]
     Dosage: 3GY PER DAY
     Dates: start: 20100615, end: 20100625

REACTIONS (1)
  - DYSPNOEA [None]
